FAERS Safety Report 6534079-8 (Version None)
Quarter: 2010Q1

REPORT INFORMATION
  Report Type: 
  Country: None (occurrence: None)
  Receive Date: 20100112
  Receipt Date: 20100106
  Transmission Date: 20100710
  Serious: Yes (Life-Threatening, Hospitalization)
  Sender: FDA-Public Use
  Company Number: PHEH2010US00487

PATIENT
  Sex: Female

DRUGS (9)
  1. TEKTURNA [Suspect]
     Dosage: 300 MG, QD
     Route: 048
     Dates: end: 20091218
  2. MICARDIS [Concomitant]
  3. BIDIL [Concomitant]
  4. OMEPRAZOLE [Concomitant]
  5. DILAUDID [Concomitant]
  6. NEURONTIN [Concomitant]
  7. ATIVAN [Concomitant]
     Dosage: 1 MG, UNK
  8. LASIX [Concomitant]
  9. LORTAB [Concomitant]

REACTIONS (3)
  - ATRIOVENTRICULAR BLOCK [None]
  - HYPERKALAEMIA [None]
  - RESPIRATORY FAILURE [None]
